FAERS Safety Report 25029862 (Version 2)
Quarter: 2025Q1

REPORT INFORMATION
  Report Type: Spontaneous
  Country: US (occurrence: US)
  Receive Date: 20250303
  Receipt Date: 20250319
  Transmission Date: 20250409
  Serious: Yes (Hospitalization, Other)
  Sender: CSL BEHRING
  Company Number: US-BEH-2025197233

PATIENT
  Age: 76 Year
  Sex: Female
  Weight: 76.19 kg

DRUGS (3)
  1. HIZENTRA [Suspect]
     Active Substance: HUMAN IMMUNOGLOBULIN G
     Indication: Immunodeficiency
     Dosage: 15 G, QW
     Route: 058
     Dates: start: 20230530
  2. HIZENTRA [Suspect]
     Active Substance: HUMAN IMMUNOGLOBULIN G
     Indication: Asthma
     Route: 065
     Dates: start: 20250310
  3. HIZENTRA [Suspect]
     Active Substance: HUMAN IMMUNOGLOBULIN G
     Indication: Acute sinusitis

REACTIONS (8)
  - Rectal haemorrhage [Unknown]
  - Diverticulitis [Unknown]
  - Neoplasm malignant [Unknown]
  - Product dose omission in error [Unknown]
  - Abdominal pain [Unknown]
  - Off label use [Unknown]
  - Weight decreased [Unknown]
  - Nausea [Unknown]

NARRATIVE: CASE EVENT DATE: 20250217
